FAERS Safety Report 20518072 (Version 4)
Quarter: 2022Q4

REPORT INFORMATION
  Report Type: Other
  Country: JP (occurrence: JP)
  Receive Date: 20220225
  Receipt Date: 20221006
  Transmission Date: 20230112
  Serious: Yes (Hospitalization, Other)
  Sender: FDA-Public Use
  Company Number: JP-CHUGAI-2021004610AA

PATIENT
  Age: 73 Year
  Sex: Male
  Weight: 49.2 kg

DRUGS (6)
  1. ATEZOLIZUMAB [Suspect]
     Active Substance: ATEZOLIZUMAB
     Indication: Lung adenocarcinoma
     Dosage: ON 01/SEP/2021, HE RECEIVED MOST RECENT DOSE OF ATEZOLIZUMAB.
     Route: 041
     Dates: start: 20210513
  2. CARBOPLATIN [Suspect]
     Active Substance: CARBOPLATIN
     Indication: Lung adenocarcinoma
     Route: 041
     Dates: start: 20210513
  3. CARBOPLATIN [Suspect]
     Active Substance: CARBOPLATIN
     Route: 041
     Dates: start: 20210721
  4. CARBOPLATIN [Suspect]
     Active Substance: CARBOPLATIN
     Dosage: ON 01/SEP/2021, RECEIVED MOST RECENT DOSE
     Route: 041
  5. PACLITAXEL [Suspect]
     Active Substance: PACLITAXEL
     Indication: Lung adenocarcinoma
     Dosage: 144 MILLIGRAM, QD
     Route: 041
     Dates: start: 20210513, end: 20210513
  6. PACLITAXEL [Suspect]
     Active Substance: PACLITAXEL
     Route: 041
     Dates: start: 20210721, end: 20210901

REACTIONS (2)
  - Hepatic function abnormal [Recovered/Resolved]
  - Neutrophil count decreased [Recovered/Resolved]

NARRATIVE: CASE EVENT DATE: 20210903
